FAERS Safety Report 26115832 (Version 1)
Quarter: 2025Q4

REPORT INFORMATION
  Report Type: Spontaneous
  Country: EU (occurrence: EU)
  Receive Date: 20251203
  Receipt Date: 20251203
  Transmission Date: 20260117
  Serious: Yes (Hospitalization)
  Sender: AMICUS THERAPEUTICS
  Company Number: EU-AMICUS THERAPEUTICS, INC.-AMI_4504

PATIENT
  Sex: Female
  Weight: 82 kg

DRUGS (2)
  1. POMBILITI [Suspect]
     Active Substance: CIPAGLUCOSIDASE ALFA-ATGA
     Indication: Glycogen storage disease type II
     Dosage: 18 AMPULES, Q2WK
     Route: 042
     Dates: start: 202312
  2. OPFOLDA [Suspect]
     Active Substance: MIGLUSTAT
     Indication: Glycogen storage disease type II
     Dosage: 4 CAPSULES, Q2WK
     Route: 048
     Dates: start: 202312

REACTIONS (1)
  - Weight increased [Not Recovered/Not Resolved]
